FAERS Safety Report 9878102 (Version 1)
Quarter: 2014Q1

REPORT INFORMATION
  Report Type: Spontaneous
  Country: JP (occurrence: JP)
  Receive Date: 20140206
  Receipt Date: 20140206
  Transmission Date: 20141002
  Serious: No
  Sender: FDA-Public Use
  Company Number: JP-BRACCO-007781

PATIENT
  Age: 47 Year
  Sex: Male

DRUGS (1)
  1. IOPAMIRON [Suspect]
     Indication: COMPUTERISED TOMOGRAM
     Route: 042
     Dates: start: 20140130, end: 20140130

REACTIONS (1)
  - Urticaria [Recovered/Resolved]
